FAERS Safety Report 9186938 (Version 1)
Quarter: 2013Q1

REPORT INFORMATION
  Report Type: Report from Study
  Country: US (occurrence: US)
  Receive Date: 20130325
  Receipt Date: 20130325
  Transmission Date: 20140127
  Serious: Yes (Life-Threatening, Hospitalization)
  Sender: FDA-Public Use
  Company Number: US-GLAXOSMITHKLINE-Z0007771A

PATIENT
  Age: 74 Year
  Sex: Female
  Weight: 68 kg

DRUGS (4)
  1. PLACEBO [Suspect]
     Indication: AGE-RELATED MACULAR DEGENERATION
     Dosage: 4DROP PER DAY
     Route: 047
     Dates: start: 20100713
  2. RANIBIZUMAB [Suspect]
     Indication: AGE-RELATED MACULAR DEGENERATION
     Dosage: 1INJ SINGLE DOSE
     Route: 031
     Dates: start: 20100702
  3. LISINOPRIL [Suspect]
     Indication: HYPERTENSION
     Dosage: 10MG PER DAY
     Route: 048
     Dates: start: 20000301, end: 20110131
  4. TRIAMTERENE/HCTZ [Suspect]
     Indication: HYPERTENSION
     Dosage: 37.5MG PER DAY
     Route: 048
     Dates: start: 20110104, end: 20110131

REACTIONS (1)
  - Hyperkalaemia [Recovered/Resolved]
